FAERS Safety Report 10259726 (Version 1)
Quarter: 2014Q2

REPORT INFORMATION
  Report Type: Spontaneous
  Country: US (occurrence: US)
  Receive Date: 20140625
  Receipt Date: 20140625
  Transmission Date: 20141212
  Serious: No
  Sender: FDA-Public Use
  Company Number: US-PFIZER INC-2014173513

PATIENT
  Age: 49 Year
  Sex: 0

DRUGS (2)
  1. AVINZA [Suspect]
     Indication: PAIN
     Dosage: UNK
     Dates: start: 2011
  2. AVINZA [Suspect]
     Dosage: 120, UNK

REACTIONS (1)
  - Drug tolerance [Unknown]
